FAERS Safety Report 6716101-9 (Version None)
Quarter: 2010Q2

REPORT INFORMATION
  Report Type: 
  Country: None (occurrence: None)
  Receive Date: 20100507
  Receipt Date: 20100428
  Transmission Date: 20101027
  Serious: Yes (Hospitalization)
  Sender: FDA-Public Use
  Company Number: B0651665A

PATIENT
  Age: 17 Year
  Sex: Female

DRUGS (3)
  1. BUPROPION HCL [Suspect]
  2. LAMOTRIGINE [Suspect]
  3. AMPHETAMINE SULFATE [Concomitant]

REACTIONS (6)
  - ACUTE RESPIRATORY DISTRESS SYNDROME [None]
  - DEPRESSED LEVEL OF CONSCIOUSNESS [None]
  - ELECTROCARDIOGRAM QRS COMPLEX PROLONGED [None]
  - GRAND MAL CONVULSION [None]
  - SUICIDE ATTEMPT [None]
  - VENTRICULAR TACHYCARDIA [None]
